FAERS Safety Report 6468475-4 (Version None)
Quarter: 2009Q4

REPORT INFORMATION
  Report Type: 
  Country: None (occurrence: None)
  Receive Date: 20091203
  Receipt Date: 20091123
  Transmission Date: 20100525
  Serious: No
  Sender: FDA-Public Use
  Company Number: US-B.I. PHARMACEUTICALS,INC./RIDGEFIELD-2009-BP-13642BP

PATIENT
  Age: 16 Year
  Sex: Female

DRUGS (2)
  1. ZANTAC 150 [Suspect]
     Indication: URTICARIA
     Dosage: 150 MG
     Route: 048
     Dates: start: 20091123
  2. ZITHROMAX [Concomitant]
     Indication: EAR INFECTION
     Dates: start: 20091120

REACTIONS (1)
  - URTICARIA [None]
